FAERS Safety Report 4691332-0 (Version None)
Quarter: 2005Q2

REPORT INFORMATION
  Report Type: 
  Country: None (occurrence: None)
  Receive Date: 20050615
  Receipt Date: 20030130
  Transmission Date: 20051028
  Serious: Yes (Hospitalization, Disabling, Other)
  Sender: FDA-Public Use
  Company Number: US-MERCK-0301USA03197

PATIENT
  Age: 65 Year
  Sex: Female
  Weight: 65 kg

DRUGS (6)
  1. VIOXX [Suspect]
     Indication: OSTEOARTHRITIS
     Route: 048
     Dates: start: 20010727, end: 20010919
  2. ZOCOR [Concomitant]
     Indication: HYPERCHOLESTEROLAEMIA
     Route: 048
  3. ESTRACE [Concomitant]
     Indication: HORMONE REPLACEMENT THERAPY
     Route: 065
  4. ESTRACE [Concomitant]
     Indication: VULVOVAGINAL DRYNESS
     Route: 065
  5. PRILOSEC [Concomitant]
     Indication: ULCER
     Route: 065
  6. LORTAB [Concomitant]
     Route: 065

REACTIONS (16)
  - ARTHRALGIA [None]
  - CEREBROVASCULAR ACCIDENT [None]
  - DRUG HYPERSENSITIVITY [None]
  - DYSPNOEA [None]
  - EMOTIONAL DISTRESS [None]
  - FALL [None]
  - FUNGAL INFECTION [None]
  - GOUT [None]
  - INCONTINENCE [None]
  - INJURY [None]
  - LIMB DISCOMFORT [None]
  - PAIN IN EXTREMITY [None]
  - TENDON INJURY [None]
  - TRANSIENT ISCHAEMIC ATTACK [None]
  - TRIGEMINAL NEURALGIA [None]
  - VAGINAL INFECTION [None]
